FAERS Safety Report 23090194 (Version 2)
Quarter: 2025Q2

REPORT INFORMATION
  Report Type: Spontaneous
  Country: US (occurrence: US)
  Receive Date: 20231020
  Receipt Date: 20250515
  Transmission Date: 20250717
  Serious: Yes (Other)
  Sender: ALEXION PHARMACEUTICALS
  Company Number: 2023A236147

PATIENT
  Age: 82 Year

DRUGS (3)
  1. TICAGRELOR [Suspect]
     Active Substance: TICAGRELOR
  2. ASPIRIN [Concomitant]
     Active Substance: ASPIRIN
  3. RITUXIMAB [Concomitant]
     Active Substance: RITUXIMAB

REACTIONS (2)
  - Haemoglobin decreased [Recovered/Resolved]
  - Melaena [Unknown]
